FAERS Safety Report 9886439 (Version 1)
Quarter: 2014Q1

REPORT INFORMATION
  Report Type: Report from Study
  Country: MY (occurrence: MY)
  Receive Date: 20140210
  Receipt Date: 20140210
  Transmission Date: 20141002
  Serious: Yes (Hospitalization, Other)
  Sender: FDA-Public Use
  Company Number: MY-US-EMD SERONO, INC.-7268558

PATIENT
  Age: 44 Year
  Sex: Female

DRUGS (1)
  1. REBIF [Suspect]
     Indication: MULTIPLE SCLEROSIS
     Dates: start: 2010

REACTIONS (9)
  - Cardiac disorder [Unknown]
  - Pneumonia [Unknown]
  - Cystitis [Unknown]
  - Paraplegia [Unknown]
  - Aphasia [Unknown]
  - Multiple sclerosis relapse [Unknown]
  - Pyrexia [Unknown]
  - Bedridden [Unknown]
  - Palliative care [Unknown]
